FAERS Safety Report 14566899 (Version 1)
Quarter: 2018Q1

REPORT INFORMATION
  Report Type: Spontaneous
  Country: US (occurrence: US)
  Receive Date: 20180209
  Receipt Date: 20180209
  Transmission Date: 20180509
  Serious: Yes (Other)
  Sender: FDA-Public Use
  Company Number: None

PATIENT
  Age: 49 Year
  Sex: Female
  Weight: 56.25 kg

DRUGS (10)
  1. VITAMIN B COMPLEX [Concomitant]
     Active Substance: CYANOCOBALAMIN\DEXPANTHENOL\NIACINAMIDE\PYRIDOXINE HYDROCHLORIDE\RIBOFLAVIN 5^-PHOSPHATE SODIUM\THIAMINE HYDROCHLORIDE\VITAMIN B COMPLEX
  2. AMINO ACID COMPLEX [Concomitant]
  3. VIT. K [Concomitant]
  4. TUMERIC [Concomitant]
     Active Substance: HERBALS\TURMERIC
  5. INTRAVENOUS GADOLINIUM CONTRAST FOR MR I [Suspect]
     Active Substance: GADOLINIUM
  6. FISH OIL [Concomitant]
     Active Substance: FISH OIL
  7. BOSWELIA (FRANKINCENSE) [Concomitant]
  8. MULTIVITAMIN AND MINERAL [Concomitant]
  9. VIT. D [Concomitant]
  10. COLLAGEN [Concomitant]
     Active Substance: COLLAGEN

REACTIONS (9)
  - Headache [None]
  - Pollakiuria [None]
  - Chest discomfort [None]
  - Dysphagia [None]
  - Micturition urgency [None]
  - Dizziness [None]
  - Thirst [None]
  - Diarrhoea [None]
  - Contrast media allergy [None]

NARRATIVE: CASE EVENT DATE: 20180108
